FAERS Safety Report 9520775 (Version 2)
Quarter: 2013Q4

REPORT INFORMATION
  Report Type: Spontaneous
  Country: GB (occurrence: None)
  Receive Date: 20130911
  Receipt Date: 20131209
  Transmission Date: 20140711
  Serious: Yes (Death, Life-Threatening, Hospitalization, Congenital Anomaly)
  Sender: FDA-Public Use
  Company Number: 1887265

PATIENT
  Age: 80 Year
  Sex: Male

DRUGS (4)
  1. METHOTREXATE [Suspect]
     Indication: PSORIATIC ARTHROPATHY
     Dosage: GREATER THAN 5 G, UNKNOWN, INTRAMUSCULAR
     Route: 030
  2. FOLIC ACID [Concomitant]
  3. FUROSEMIDE [Concomitant]
  4. OMEPRAZOLE [Concomitant]

REACTIONS (3)
  - Hepatic cirrhosis [None]
  - Pneumonia aspiration [None]
  - Hepatotoxicity [None]
